FAERS Safety Report 14586602 (Version 1)
Quarter: 2018Q1

REPORT INFORMATION
  Report Type: Spontaneous
  Country: FR (occurrence: US)
  Receive Date: 20180228
  Receipt Date: 20180228
  Transmission Date: 20180509
  Serious: Yes (Death, Disabling, Other)
  Sender: FDA-Public Use
  Company Number: None

PATIENT
  Age: 33 Year
  Sex: Female
  Weight: 43 kg

DRUGS (2)
  1. EFFEXOR [Concomitant]
     Active Substance: VENLAFAXINE HYDROCHLORIDE
  2. ESPERAL IMPLANT [Suspect]
     Active Substance: DISULFIRAM
     Dates: start: 20180105

REACTIONS (2)
  - Antabuse implant [None]
  - Complication associated with device [None]

NARRATIVE: CASE EVENT DATE: 20180105
